FAERS Safety Report 14645349 (Version 1)
Quarter: 2018Q1

REPORT INFORMATION
  Report Type: Report from Study
  Country: IN (occurrence: IN)
  Receive Date: 20180315
  Receipt Date: 20180315
  Transmission Date: 20180509
  Serious: Yes (Hospitalization)
  Sender: FDA-Public Use
  Company Number: IN-BIOGEN-2018BI00540633

PATIENT
  Age: 17 Year
  Sex: Male

DRUGS (2)
  1. TECFIDERA [Suspect]
     Active Substance: DIMETHYL FUMARATE
     Indication: MULTIPLE SCLEROSIS
     Route: 065
  2. TECFIDERA [Suspect]
     Active Substance: DIMETHYL FUMARATE
     Route: 065
     Dates: start: 20170105, end: 20180307

REACTIONS (10)
  - Hyperhidrosis [Unknown]
  - Muscle tightness [Unknown]
  - Tremor [Unknown]
  - Swelling [Unknown]
  - Gait inability [Unknown]
  - Rash vesicular [Not Recovered/Not Resolved]
  - Flushing [Unknown]
  - Chills [Unknown]
  - Fall [Recovered/Resolved]
  - Drug administered to patient of inappropriate age [Recovered/Resolved]

NARRATIVE: CASE EVENT DATE: 201701
